FAERS Safety Report 19494175 (Version 1)
Quarter: 2021Q3

REPORT INFORMATION
  Report Type: Report from Study
  Country: None (occurrence: US)
  Receive Date: 20210706
  Receipt Date: 20210706
  Transmission Date: 20211014
  Serious: Yes (Hospitalization, Other)
  Sender: FDA-Public Use
  Company Number: US-ABBVIE-21K-163-3951885-00

PATIENT
  Age: 42 Year
  Sex: Female

DRUGS (3)
  1. DICYCLOMINE [Interacting]
     Active Substance: DICYCLOMINE HYDROCHLORIDE
     Indication: PRODUCT USED FOR UNKNOWN INDICATION
     Route: 065
     Dates: end: 2021
  2. POTASSIUM CITRATE. [Interacting]
     Active Substance: POTASSIUM CITRATE
     Indication: MINERAL SUPPLEMENTATION
     Route: 065
  3. HUMIRA [Suspect]
     Active Substance: ADALIMUMAB
     Indication: CROHN^S DISEASE
     Dosage: CITRATE FREE
     Route: 058
     Dates: start: 20200320

REACTIONS (12)
  - Electrocardiogram QT prolonged [Not Recovered/Not Resolved]
  - Disturbance in attention [Unknown]
  - Rib fracture [Recovering/Resolving]
  - Vomiting [Recovered/Resolved]
  - Loss of consciousness [Unknown]
  - Cognitive disorder [Not Recovered/Not Resolved]
  - Blood potassium decreased [Unknown]
  - Atrial fibrillation [Not Recovered/Not Resolved]
  - Myocardial infarction [Not Recovered/Not Resolved]
  - Diarrhoea [Recovered/Resolved]
  - Dehydration [Unknown]
  - Abdominal pain [Unknown]

NARRATIVE: CASE EVENT DATE: 2021
